FAERS Safety Report 7649971-0 (Version None)
Quarter: 2011Q3

REPORT INFORMATION
  Report Type: 
  Country: None (occurrence: None)
  Receive Date: 20110802
  Receipt Date: 20110730
  Transmission Date: 20111222
  Serious: Yes (Death, Hospitalization)
  Sender: FDA-Public Use
  Company Number: US-BRISTOL-MYERS SQUIBB COMPANY-15852379

PATIENT
  Age: 61 Year
  Sex: Male
  Weight: 80 kg

DRUGS (32)
  1. VANCOMYCIN [Concomitant]
     Route: 048
  2. FENTANYL [Concomitant]
     Route: 042
  3. MIDAZOLAM HCL [Concomitant]
     Route: 042
  4. ZOFRAN [Concomitant]
     Indication: VOMITING
  5. FERROUS SULFATE TAB [Concomitant]
     Dosage: EC 324MG TAB
     Route: 048
  6. PREDNISONE TAB [Concomitant]
  7. LORAZEPAM [Concomitant]
     Indication: ANXIETY
     Dosage: 0.5-1 MG Q12HRS
     Route: 042
  8. MILK OF MAGNESIA TAB [Concomitant]
  9. OCTREOTIDE ACETATE [Concomitant]
     Dosage: 1 INJ
     Dates: start: 20110612
  10. HEPARIN LOCK-FLUSH [Concomitant]
     Route: 042
  11. TENOFOVIR DISOPROXIL FUMARATE [Concomitant]
     Route: 048
  12. FLAGYL [Concomitant]
     Dosage: ALSO ORAL
     Route: 042
  13. TYLENOL-500 [Concomitant]
     Indication: PAIN
  14. BISACODYL SUPPOSITORY [Concomitant]
  15. ZOFRAN [Concomitant]
     Indication: NAUSEA
  16. SODIUM CHLORIDE [Concomitant]
     Route: 042
  17. OMEPRAZOLE [Concomitant]
     Indication: PROPHYLAXIS
     Dosage: 1 DF: 1 CAP 20MG/D
     Route: 048
  18. RANITIDINE [Concomitant]
     Route: 048
  19. IMODIUM [Concomitant]
  20. DICYCLOMINE [Concomitant]
     Dosage: 1 TAB ,BEFORE MEAL.
     Route: 048
     Dates: start: 20110612
  21. OXYGEN [Concomitant]
  22. ONDANSETRON [Concomitant]
     Indication: NAUSEA
     Dosage: 1 DF: 4-8 MG TAB Q8HRS PRN INJ IV 4MG/2ML
     Route: 048
     Dates: start: 20110612
  23. HEPARIN SODIUM [Concomitant]
     Route: 058
  24. KEPPRA [Concomitant]
     Indication: CONVULSION
     Dosage: 1 DF: 2 TAB 1000MG BID 500MG BID,
     Route: 048
  25. METRONIDAZOLE [Concomitant]
     Dosage: ROA:IVPB
  26. PREDNISONE TAB [Concomitant]
     Dosage: TAB
     Route: 048
  27. SENNA [Concomitant]
  28. VIREAD [Concomitant]
     Route: 048
     Dates: start: 20110612
  29. IPILIMUMAB [Suspect]
     Indication: MALIGNANT MELANOMA
     Route: 042
     Dates: start: 20110202, end: 20110405
  30. PROCHLORPERAZINE [Concomitant]
     Dosage: INJ Q6HRS
     Route: 042
  31. TRIAMCINOLONE [Concomitant]
     Dosage: 1 DF: 1 APPLICATION CREAM 80G
     Route: 061
  32. OXYCODONE HCL [Concomitant]
     Dosage: 1DF:4-5MG 1-2 TABS S NEEEDED
     Route: 048
     Dates: start: 20110612

REACTIONS (6)
  - CLOSTRIDIAL INFECTION [None]
  - PAIN [None]
  - NEOPLASM MALIGNANT [None]
  - ENTEROCOLITIS [None]
  - NAUSEA [None]
  - VOMITING [None]
